FAERS Safety Report 5730673-2 (Version None)
Quarter: 2008Q2

REPORT INFORMATION
  Report Type: 
  Country: None (occurrence: None)
  Receive Date: 20080507
  Receipt Date: 20080429
  Transmission Date: 20081010
  Serious: Yes (Other)
  Sender: FDA-Public Use
  Company Number: US-TEVA-171150USA

PATIENT
  Age: 56 Year
  Sex: Female

DRUGS (3)
  1. DOXORUBICIN HYDROCHLORIDE 10 MG/ML, 20 MG/ML, 50 MG/ML + 150 MG/ML POW [Suspect]
     Indication: BREAST CANCER STAGE II
     Dosage: 60 MG/M2
     Route: 042
  2. CYCLOPHOSPHAMIDE [Suspect]
     Indication: BREAST CANCER STAGE II
     Dosage: 600 MG/M2
     Route: 042
  3. DOCETAXEL [Suspect]
     Indication: BREAST CANCER STAGE II
     Dosage: 35 MG/M2
     Route: 042

REACTIONS (2)
  - COGNITIVE DISORDER [None]
  - NUCLEAR MAGNETIC RESONANCE IMAGING ABNORMAL [None]
